FAERS Safety Report 9526115 (Version 2)
Quarter: 2013Q4

REPORT INFORMATION
  Report Type: Spontaneous
  Country: CA (occurrence: CA)
  Receive Date: 20130916
  Receipt Date: 20131002
  Transmission Date: 20140711
  Serious: Yes (Life-Threatening, Other)
  Sender: FDA-Public Use
  Company Number: CA-JNJFOC-20130905071

PATIENT
  Sex: Female
  Weight: 63.5 kg

DRUGS (2)
  1. BENADRYL RS ALLERGY [Suspect]
     Indication: EYE PRURITUS
     Dosage: 1-2
     Route: 048
     Dates: start: 20110911
  2. BENADRYL RS ALLERGY [Suspect]
     Indication: SWELLING FACE
     Dosage: 1-2
     Route: 048
     Dates: start: 20110911

REACTIONS (4)
  - Anaphylactic shock [Recovered/Resolved]
  - Condition aggravated [Recovered/Resolved]
  - Anxiety [Recovered/Resolved]
  - Drug ineffective [Recovered/Resolved]
